FAERS Safety Report 5023829-8 (Version None)
Quarter: 2006Q2

REPORT INFORMATION
  Report Type: 
  Country: None (occurrence: None)
  Receive Date: 20060606
  Receipt Date: 20060525
  Transmission Date: 20061013
  Serious: Yes (Hospitalization, Other)
  Sender: FDA-Public Use
  Company Number: HQWYE074018APR05

PATIENT
  Age: 55 Year
  Sex: Female

DRUGS (5)
  1. RAPAMUNE [Suspect]
     Indication: PROPHYLAXIS AGAINST TRANSPLANT REJECTION
  2. PREDNISONE TAB [Suspect]
  3. BACTRIM [Concomitant]
  4. ENALAPRIL MALEATE [Concomitant]
  5. CYCLOSPORINE [Concomitant]

REACTIONS (1)
  - EROSIVE OESOPHAGITIS [None]
